FAERS Safety Report 7461124-8 (Version None)
Quarter: 2011Q2

REPORT INFORMATION
  Report Type: 
  Country: None (occurrence: None)
  Receive Date: 20110505
  Receipt Date: 20110426
  Transmission Date: 20111010
  Serious: Yes (Hospitalization, Other)
  Sender: FDA-Public Use
  Company Number: US-ASTRAZENECA-2010SE30756

PATIENT
  Age: 27701 Day
  Sex: Female

DRUGS (1)
  1. CRESTOR [Suspect]
     Route: 048

REACTIONS (3)
  - JOINT RANGE OF MOTION DECREASED [None]
  - KNEE ARTHROPLASTY [None]
  - CEREBRAL MICROANGIOPATHY [None]
